FAERS Safety Report 8128225-2 (Version None)
Quarter: 2012Q1

REPORT INFORMATION
  Report Type: 
  Country: None (occurrence: None)
  Receive Date: 20120210
  Receipt Date: 20120201
  Transmission Date: 20120608
  Serious: Yes (Hospitalization, Other)
  Sender: FDA-Public Use
  Company Number: US-ABBOTT-12P-163-0900399-00

PATIENT
  Sex: Female
  Weight: 46.762 kg

DRUGS (2)
  1. HUMIRA [Suspect]
     Indication: CROHN'S DISEASE
     Route: 058
     Dates: start: 20090101, end: 20120101
  2. ENTOCORT EC [Concomitant]
     Indication: CROHN'S DISEASE

REACTIONS (12)
  - SMALL INTESTINAL OBSTRUCTION [None]
  - INTESTINAL STENOSIS [None]
  - ABDOMINAL PAIN [None]
  - ASCITES [None]
  - GASTROINTESTINAL OEDEMA [None]
  - INTESTINAL DILATATION [None]
  - GENERALISED OEDEMA [None]
  - PYREXIA [None]
  - SEPSIS [None]
  - PLEURAL EFFUSION [None]
  - OEDEMA PERIPHERAL [None]
  - ELECTROLYTE IMBALANCE [None]
